FAERS Safety Report 6306827-3 (Version None)
Quarter: 2009Q3

REPORT INFORMATION
  Report Type: 
  Country: None (occurrence: None)
  Receive Date: 20090812
  Receipt Date: 20090731
  Transmission Date: 20100115
  Serious: Yes (Hospitalization)
  Sender: FDA-Public Use
  Company Number: FR-PFIZER INC-2009248492

PATIENT
  Age: 45 Year

DRUGS (7)
  1. CHAMPIX [Suspect]
     Dosage: UNK
     Route: 048
     Dates: start: 20090328, end: 20090412
  2. ABILIFY [Concomitant]
     Indication: SCHIZOPHRENIA
     Dosage: 15 MG, UNK
     Route: 048
  3. TRANXENE [Concomitant]
     Indication: SCHIZOPHRENIA
     Dosage: 10 MG, UNK
     Route: 048
  4. RISPERDAL [Concomitant]
     Indication: SCHIZOPHRENIA
     Dosage: 2 MG, UNK
     Route: 048
  5. LEPTICUR [Concomitant]
     Indication: SCHIZOPHRENIA
     Dosage: 10 MG, UNK
     Route: 048
  6. TERCIAN [Concomitant]
     Indication: SCHIZOPHRENIA
  7. IMOVANE [Concomitant]
     Indication: SCHIZOPHRENIA

REACTIONS (3)
  - DISORIENTATION [None]
  - PORIOMANIA [None]
  - PSYCHIATRIC DECOMPENSATION [None]
